FAERS Safety Report 8313366-7 (Version None)
Quarter: 2012Q2

REPORT INFORMATION
  Report Type: 
  Country: None (occurrence: None)
  Receive Date: 20120424
  Receipt Date: 20120405
  Transmission Date: 20120825
  Serious: Yes (Hospitalization, Other)
  Sender: FDA-Public Use
  Company Number: TUK2012A00083

PATIENT
  Age: 69 Year
  Sex: Female

DRUGS (2)
  1. PIOGLITAZONE [Suspect]
     Indication: TYPE 2 DIABETES MELLITUS
  2. METFORMIN HCL [Suspect]
     Indication: TYPE 2 DIABETES MELLITUS

REACTIONS (13)
  - DIABETES MELLITUS INADEQUATE CONTROL [None]
  - PROTEINURIA [None]
  - VIITH NERVE PARALYSIS [None]
  - SOFT TISSUE MASS [None]
  - HEADACHE [None]
  - DEAFNESS UNILATERAL [None]
  - OTITIS EXTERNA [None]
  - AURICULAR SWELLING [None]
  - BONE DISORDER [None]
  - EAR PAIN [None]
  - PURULENCE [None]
  - RED BLOOD CELL SEDIMENTATION RATE INCREASED [None]
  - OTORRHOEA [None]
